FAERS Safety Report 8429285-1 (Version None)
Quarter: 2012Q2

REPORT INFORMATION
  Report Type: 
  Country: None (occurrence: None)
  Receive Date: 20120612
  Receipt Date: 20120611
  Transmission Date: 20120825
  Serious: Yes (Death, Other)
  Sender: FDA-Public Use
  Company Number: PHHY2012NL043895

PATIENT
  Sex: Male

DRUGS (8)
  1. ZOMETA [Suspect]
     Dosage: 4 MG / 100 ML ONCE IN 28 DAYS
     Route: 042
     Dates: start: 20120206
  2. ACETYLSALICYLIC ACID SRT [Concomitant]
  3. SYMBICORT [Concomitant]
  4. ZOMETA [Suspect]
     Dosage: 4 MG / 100 ML ONCE IN 28 DAYS
     Route: 042
     Dates: start: 20120403
  5. ZOMETA [Suspect]
     Dosage: 4 MG / 100 ML ONCE IN 28 DAYS
     Route: 042
     Dates: start: 20120502
  6. SIMVASTATIN [Concomitant]
  7. ZOMETA [Suspect]
     Indication: METASTASES TO BONE
     Dosage: 4 MG / 100 ML ONCE IN 28 DAYS
     Route: 042
     Dates: start: 20120123
  8. PROPRANOLOL [Concomitant]

REACTIONS (3)
  - TERMINAL STATE [None]
  - NEOPLASM PROGRESSION [None]
  - NEOPLASM MALIGNANT [None]
